FAERS Safety Report 13835577 (Version 1)
Quarter: 2017Q3

REPORT INFORMATION
  Report Type: Spontaneous
  Country: US (occurrence: US)
  Receive Date: 20170804
  Receipt Date: 20170804
  Transmission Date: 20171127
  Serious: Yes (Hospitalization)
  Sender: FDA-Public Use
  Company Number: None

PATIENT
  Age: 81 Year
  Sex: Male
  Weight: 91 kg

DRUGS (10)
  1. CALCITROL [Concomitant]
     Active Substance: CALCITRIOL
  2. SITAGLIPTIN [Concomitant]
     Active Substance: SITAGLIPTIN
  3. RUXOLITINIB [Suspect]
     Active Substance: RUXOLITINIB
     Indication: PRODUCT USED FOR UNKNOWN INDICATION
     Route: 048
     Dates: start: 20170606
  4. SIMVASTININ [Concomitant]
  5. LASIX [Concomitant]
     Active Substance: FUROSEMIDE
  6. FLUCONAZAOL [Concomitant]
  7. ZETIA [Concomitant]
     Active Substance: EZETIMIBE
  8. ASPIRIN. [Concomitant]
     Active Substance: ASPIRIN
  9. ALLOPURINOL. [Concomitant]
     Active Substance: ALLOPURINOL
  10. LOPRESSOR [Concomitant]
     Active Substance: METOPROLOL TARTRATE

REACTIONS (2)
  - Dizziness [None]
  - Hypotension [None]

NARRATIVE: CASE EVENT DATE: 20170801
